FAERS Safety Report 21125375 (Version 2)
Quarter: 2024Q4

REPORT INFORMATION
  Report Type: Report from Study
  Country: GB (occurrence: GB)
  Receive Date: 20220725
  Receipt Date: 20241212
  Transmission Date: 20250115
  Serious: Yes (Other)
  Sender: NOVARTIS
  Company Number: GB-NOVARTISPH-NVSC2022GB163974

PATIENT
  Sex: Female

DRUGS (1)
  1. COSENTYX [Suspect]
     Active Substance: SECUKINUMAB
     Indication: Ankylosing spondylitis
     Dosage: 150 MG, QMO
     Route: 065

REACTIONS (5)
  - Osteomyelitis [Unknown]
  - Arthralgia [Unknown]
  - Infection [Recovered/Resolved]
  - Localised infection [Unknown]
  - Erythema [Unknown]
